FAERS Safety Report 7965052 (Version 5)
Quarter: 2020Q2

REPORT INFORMATION
  Report Type: Report from Study
  Country: NO (occurrence: NO)
  Receive Date: 20110527
  Receipt Date: 20200409
  Transmission Date: 20200714
  Serious: Yes (Death)
  Sender: FDA-Public Use
  Company Number: NO-PFIZER INC-2011113874

PATIENT
  Age: 8 Year
  Sex: Male

DRUGS (5)
  1. IFOSFAMIDE. [Suspect]
     Active Substance: IFOSFAMIDE
     Indication: OSTEOSARCOMA
     Dosage: 2 G/M2 /DAY FOR 5 DAYS OF EACH CYCLE
     Route: 041
  2. DOXORUBICIN HCL [Suspect]
     Active Substance: DOXORUBICIN HYDROCHLORIDE
     Indication: OSTEOSARCOMA
     Dosage: 75 MG/M2, CYCLIC (4-HOUR CONTINUOUS INFUSION)
     Route: 041
  3. LEUCOVORIN [FOLINIC ACID] [Concomitant]
     Active Substance: LEUCOVORIN
     Indication: SALVAGE THERAPY
     Dosage: 8 MG/M2, CYCLIC (EVERY SIXTH HOUR), BEGINNING 24 HOURS AFTER STARTING MTX INFUSION
     Route: 041
  4. CISPLATIN. [Suspect]
     Active Substance: CISPLATIN
     Indication: OSTEOSARCOMA
     Dosage: 90 MG/M2, CYCLIC  (48-HOUR CONTINUOUS INFUSION)
     Route: 041
  5. METHOTREXATE SODIUM. [Suspect]
     Active Substance: METHOTREXATE SODIUM
     Indication: OSTEOSARCOMA
     Dosage: 12 G/M (4-HOUR INFUSION), CYCLIC
     Route: 041

REACTIONS (2)
  - Febrile neutropenia [Fatal]
  - Septic shock [Fatal]
